FAERS Safety Report 9836752 (Version 1)
Quarter: 2013Q4

REPORT INFORMATION
  Report Type: Spontaneous
  Country: US (occurrence: None)
  Receive Date: 20131120
  Receipt Date: 20131120
  Transmission Date: 20140711
  Serious: No
  Sender: FDA-Public Use
  Company Number: 1000049154

PATIENT
  Age: 72 Year
  Sex: Male

DRUGS (2)
  1. VIIBRYD [Suspect]
     Indication: DEPRESSION
     Dosage: 10MG (10MG, 1 IN 1 D) ORAL
     Route: 048
     Dates: start: 2013, end: 2013
  2. VIIBRYD [Suspect]
     Indication: DEPRESSION
     Dosage: 20MG (20MG, 1 IN 1D) ORAL
     Route: 048
     Dates: start: 2013, end: 2013

REACTIONS (5)
  - Diarrhoea [None]
  - Increased appetite [None]
  - Weight increased [None]
  - Night sweats [None]
  - Insomnia [None]
